FAERS Safety Report 14338547 (Version 2)
Quarter: 2018Q1

REPORT INFORMATION
  Report Type: Report from Study
  Country: US (occurrence: US)
  Receive Date: 20171229
  Receipt Date: 20180102
  Transmission Date: 20180509
  Serious: Yes (Hospitalization)
  Sender: FDA-Public Use
  Company Number: US-EXELIXIS-CABO-17011192

PATIENT
  Sex: Male

DRUGS (3)
  1. LEVOTHYROXIN [Concomitant]
     Active Substance: LEVOTHYROXINE
  2. FERRIC SUBSULFATE. [Concomitant]
     Active Substance: FERRIC SUBSULFATE
  3. COMETRIQ [Suspect]
     Active Substance: CABOZANTINIB S-MALATE
     Indication: THYROID CANCER
     Dosage: 100 MG, QD
     Route: 048
     Dates: start: 20171102

REACTIONS (9)
  - Weight decreased [Unknown]
  - Malaise [Unknown]
  - Insomnia [Unknown]
  - Muscle spasms [Unknown]
  - Cancer pain [Unknown]
  - Chemotherapy [Unknown]
  - Pain [Unknown]
  - Malignant neoplasm progression [Unknown]
  - Dyspnoea [Unknown]
